FAERS Safety Report 11769686 (Version 2)
Quarter: 2015Q4

REPORT INFORMATION
  Report Type: Other
  Country: FR (occurrence: FR)
  Receive Date: 20151123
  Receipt Date: 20151124
  Transmission Date: 20160304
  Serious: Yes (Hospitalization, Other)
  Sender: FDA-Public Use
  Company Number: FR-PURDUE-DEU-2015-0017399

PATIENT
  Age: 40 Year
  Sex: Male

DRUGS (5)
  1. DIAMORPHINE [Concomitant]
     Active Substance: DIACETYLMORPHINE
     Route: 065
  2. LYSINE ASPIRIN [Concomitant]
     Active Substance: ASPIRIN DL-LYSINE
     Route: 065
  3. NON-PMN BUPRENORPHINE [Suspect]
     Active Substance: BUPRENORPHINE
     Indication: PRODUCT USED FOR UNKNOWN INDICATION
     Route: 013
  4. HEROIN [Concomitant]
     Active Substance: DIACETYLMORPHINE
     Route: 051
  5. ZOLPIDEM [Concomitant]
     Active Substance: ZOLPIDEM\ZOLPIDEM TARTRATE
     Route: 065

REACTIONS (2)
  - Drug abuse [Unknown]
  - Embolic stroke [Unknown]
